FAERS Safety Report 9494497 (Version 2)
Quarter: 2013Q4

REPORT INFORMATION
  Report Type: Not Available
  Country: SE (occurrence: SE)
  Receive Date: 20130903
  Receipt Date: 20131016
  Transmission Date: 20140711
  Serious: Yes (Life-Threatening, Other)
  Sender: FDA-Public Use
  Company Number: SE-ASTELLAS-2013EU007394

PATIENT
  Age: 46 Year
  Sex: Male

DRUGS (1)
  1. MYCAMINE [Suspect]
     Indication: RESPIRATORY MONILIASIS
     Dosage: UNK
     Route: 042
     Dates: start: 20130709, end: 20130801

REACTIONS (3)
  - Bone marrow failure [Recovering/Resolving]
  - Neutropenia [Not Recovered/Not Resolved]
  - Hyperbilirubinaemia [Not Recovered/Not Resolved]
